FAERS Safety Report 5397151-4 (Version None)
Quarter: 2007Q3

REPORT INFORMATION
  Report Type: 
  Country: None (occurrence: None)
  Receive Date: 20070723
  Receipt Date: 20070710
  Transmission Date: 20080115
  Serious: Yes (Other)
  Sender: FDA-Public Use
  Company Number: 2007-03283

PATIENT
  Age: 50 Year
  Sex: Male

DRUGS (2)
  1. TESTOSTERONE CYPIONATE [Suspect]
     Indication: OSTEOPENIA
     Dosage: 0.75 ML, Q2 WEEKS, INTRAMUSCULAR
     Route: 030
     Dates: start: 20030701, end: 20070501
  2. TESTOSTERONE CYPIONATE [Suspect]
     Indication: OSTEOPENIA
     Dosage: 0.75 ML, Q2 WEEKS, INTRAMUSCULAR
     Route: 030
     Dates: start: 20070527, end: 20070708

REACTIONS (8)
  - ANAPHYLACTIC REACTION [None]
  - DYSPNOEA [None]
  - FEELING HOT [None]
  - HYPOAESTHESIA [None]
  - INJECTION SITE ERYTHEMA [None]
  - INJECTION SITE PAIN [None]
  - PHARYNGEAL OEDEMA [None]
  - RETCHING [None]
